FAERS Safety Report 13951513 (Version 1)
Quarter: 2017Q3

REPORT INFORMATION
  Report Type: Spontaneous
  Country: US (occurrence: US)
  Receive Date: 20170908
  Receipt Date: 20170908
  Transmission Date: 20171128
  Serious: No
  Sender: FDA-Public Use
  Company Number: US-JAZZ-2017-US-009712

PATIENT
  Sex: Male

DRUGS (21)
  1. CATAPRES-TTS [Concomitant]
     Active Substance: CLONIDINE
  2. FUROSEMIDE. [Concomitant]
     Active Substance: FUROSEMIDE
  3. XYREM [Suspect]
     Active Substance: SODIUM OXYBATE
     Indication: CATAPLEXY
     Dosage: 3 G, TID
     Route: 048
     Dates: start: 201512
  4. EFFEXOR [Concomitant]
     Active Substance: VENLAFAXINE HYDROCHLORIDE
  5. NEURONTIN [Concomitant]
     Active Substance: GABAPENTIN
  6. XYREM [Suspect]
     Active Substance: SODIUM OXYBATE
     Indication: NARCOLEPSY
     Dosage: 4.5 G, BID
     Route: 048
     Dates: start: 200209, end: 201512
  7. BENICAR [Concomitant]
     Active Substance: OLMESARTAN MEDOXOMIL
  8. CRESTOR [Concomitant]
     Active Substance: ROSUVASTATIN CALCIUM
  9. DOXAZOSIN MESYLATE. [Concomitant]
     Active Substance: DOXAZOSIN MESYLATE
  10. HYDRALAZINE [Concomitant]
     Active Substance: HYDRALAZINE HYDROCHLORIDE
  11. TRIAMCINOLONE [Concomitant]
     Active Substance: TRIAMCINOLONE
  12. ZAROXOLYN [Concomitant]
     Active Substance: METOLAZONE
  13. AMLODIPINE BESYLATE. [Concomitant]
     Active Substance: AMLODIPINE BESYLATE
  14. ASPIRIN                            /00002701/ [Concomitant]
     Active Substance: ASPIRIN
  15. VITAMIN D3 [Concomitant]
     Active Substance: CHOLECALCIFEROL
  16. TRIAMCINOLONE [Concomitant]
     Active Substance: TRIAMCINOLONE
  17. ALLOPURINOL. [Concomitant]
     Active Substance: ALLOPURINOL
  18. PROVIGIL [Concomitant]
     Active Substance: MODAFINIL
  19. CETIRIZINE HCL [Concomitant]
     Active Substance: CETIRIZINE HYDROCHLORIDE
  20. LIDODERM [Concomitant]
     Active Substance: LIDOCAINE
  21. KLOR-CON [Concomitant]
     Active Substance: POTASSIUM CHLORIDE

REACTIONS (1)
  - Blood sodium abnormal [Not Recovered/Not Resolved]
